FAERS Safety Report 5156721-9 (Version None)
Quarter: 2006Q4

REPORT INFORMATION
  Report Type: 
  Country: None (occurrence: None)
  Receive Date: 20061115
  Receipt Date: 20061030
  Transmission Date: 20070319
  Serious: Yes (Other)
  Sender: FDA-Public Use
  Company Number: DSA_28456_2006

PATIENT
  Age: 38 Year
  Sex: Female

DRUGS (2)
  1. TAVOR [Suspect]
     Indication: ANXIETY
     Dosage: VAR Q DAY PO
     Route: 048
  2. INSIDON [Concomitant]

REACTIONS (4)
  - CERVICAL INCOMPETENCE [None]
  - DRUG EXPOSURE DURING PREGNANCY [None]
  - PREGNANCY [None]
  - PREMATURE RUPTURE OF MEMBRANES [None]
